FAERS Safety Report 16946603 (Version 1)
Quarter: 2019Q4

REPORT INFORMATION
  Report Type: Spontaneous
  Country: ES (occurrence: ES)
  Receive Date: 20191022
  Receipt Date: 20191022
  Transmission Date: 20200122
  Serious: Yes (Other)
  Sender: FDA-Public Use
  Company Number: ES-AMNEAL PHARMACEUTICALS-2019-AMRX-02365

PATIENT
  Age: 54 Year
  Sex: Female

DRUGS (1)
  1. IBUPROFEN. [Suspect]
     Active Substance: IBUPROFEN
     Indication: DERMATITIS ATOPIC
     Dosage: UNK
     Route: 065

REACTIONS (3)
  - Necrotising fasciitis [Recovered/Resolved]
  - Eyelid oedema [Recovered/Resolved]
  - Beta haemolytic streptococcal infection [Recovered/Resolved]
